FAERS Safety Report 8338425-4 (Version None)
Quarter: 2012Q2

REPORT INFORMATION
  Report Type: 
  Country: None (occurrence: None)
  Receive Date: 20120504
  Receipt Date: 20120425
  Transmission Date: 20120825
  Serious: Yes (Other)
  Sender: FDA-Public Use
  Company Number: JP-VERTEX PHARMACEUTICALS INC.-AE-2012-006317

PATIENT
  Age: 71 Year
  Sex: Male

DRUGS (14)
  1. RIBAVIRIN [Concomitant]
     Route: 048
     Dates: start: 20120302, end: 20120315
  2. RIBAVIRIN [Concomitant]
     Route: 048
     Dates: start: 20120316, end: 20120329
  3. PEGINTERFERON ALFA-2B [Concomitant]
     Route: 051
     Dates: start: 20120302, end: 20120329
  4. URSO 250 [Concomitant]
     Route: 048
  5. LEVOTHYROXINE SODIUM [Concomitant]
     Route: 048
  6. BUP-4 [Concomitant]
     Route: 048
  7. REZALTAS [Concomitant]
     Route: 048
  8. BEZATOL SR [Concomitant]
     Route: 048
  9. TELAVIC (TELAPREVIR) [Suspect]
     Route: 048
     Dates: start: 20120330
  10. GLYCYRON [Concomitant]
     Route: 048
  11. PEGINTERFERON ALFA-2B [Concomitant]
     Route: 051
     Dates: start: 20120330
  12. SOLDEM 3A [Concomitant]
     Dates: start: 20120316
  13. TELAVIC (TELAPREVIR) [Suspect]
     Indication: HEPATITIS C
     Route: 048
     Dates: start: 20120301, end: 20120329
  14. FLIVAS [Concomitant]
     Route: 048

REACTIONS (2)
  - RENAL IMPAIRMENT [None]
  - DRUG ERUPTION [None]
